FAERS Safety Report 7783636-X (Version None)
Quarter: 2011Q3

REPORT INFORMATION
  Report Type: 
  Country: None (occurrence: None)
  Receive Date: 20110926
  Receipt Date: 20110909
  Transmission Date: 20111222
  Serious: Yes (Hospitalization, Other)
  Sender: FDA-Public Use
  Company Number: DSA_47633_2011

PATIENT
  Age: 39 Year
  Sex: Female

DRUGS (1)
  1. ENALAPRIL MALEATE [Suspect]
     Indication: HYPERTENSION
     Dosage: (10 MG BID ORAL)
     Route: 048
     Dates: start: 20070101

REACTIONS (5)
  - BLOOD PRESSURE FLUCTUATION [None]
  - HYPERTENSION [None]
  - HEADACHE [None]
  - DRUG INEFFECTIVE [None]
  - NAUSEA [None]
